FAERS Safety Report 21659576 (Version 1)
Quarter: 2022Q4

REPORT INFORMATION
  Report Type: Spontaneous
  Country: CN (occurrence: CN)
  Receive Date: 20221129
  Receipt Date: 20221129
  Transmission Date: 20230112
  Serious: Yes (Other)
  Sender: FDA-Public Use
  Company Number: CN-002147023-NVSC2022CN264606

PATIENT
  Age: 7 Year

DRUGS (11)
  1. TOPOTECAN [Suspect]
     Active Substance: TOPOTECAN HYDROCHLORIDE
     Indication: Neuroblastoma recurrent
     Dosage: LIGHT-RESISTANT, 2 G/M2 DAILY AS A CONTINUOUS INFUSION OVER DAYS 1 TO 3 AS CT REGIMEN (2 CYCLES)
     Route: 065
  2. CYCLOPHOSPHAMIDE [Suspect]
     Active Substance: CYCLOPHOSPHAMIDE
     Indication: Neuroblastoma recurrent
     Dosage: UNK AS CPP REGIMEN (2 CYCLES)
     Route: 065
  3. CYCLOPHOSPHAMIDE [Suspect]
     Active Substance: CYCLOPHOSPHAMIDE
     Dosage: UNK AS CD REGIMEN (2 CYCLES)
     Route: 065
  4. CYCLOPHOSPHAMIDE [Suspect]
     Active Substance: CYCLOPHOSPHAMIDE
     Dosage: 1.2 G/M2 FOR 3 H DAILY ON DAYS 1 TO 2 AS CT REGIMEN (2 CYCLES)
     Route: 065
  5. PIRARUBICIN [Suspect]
     Active Substance: PIRARUBICIN
     Indication: Neuroblastoma recurrent
     Dosage: UNK AS CPP REGIMEN (2 CYCLES)
     Route: 065
  6. CISPLATIN [Suspect]
     Active Substance: CISPLATIN
     Indication: Neuroblastoma recurrent
     Dosage: UNK AS CPP REGIMEN (2 CYCLES)
     Route: 065
  7. CISPLATIN [Suspect]
     Active Substance: CISPLATIN
     Dosage: 50 MG/M2 DAILY FOR 6 H OVER DAYS 1-4 AS PVP REGIMEN (2 CYCLES)
     Route: 065
  8. ETOPOSIDE [Suspect]
     Active Substance: ETOPOSIDE
     Indication: Neuroblastoma recurrent
     Dosage: LIGHT-RESISTANT, 200 MG/M2 DAILY FOR MORE THAN 4 H OVER DAYS 1-3 AS PVP REGIMEN (2 CYCLES)
     Route: 065
  9. DACARBAZINE [Suspect]
     Active Substance: DACARBAZINE
     Indication: Neuroblastoma recurrent
     Dosage: UNK AS CD REGIMEN (2 CYCLES)
     Route: 065
  10. ARSENIC TRIOXIDE [Suspect]
     Active Substance: ARSENIC TRIOXIDE
     Indication: Neuroblastoma recurrent
     Dosage: 0.16 MG/KG, QD (ADMINISTERED AT A CONSTANT RATE OVER 8 H IN 250 TO 500 ML OF NORMAL SALINE OR IN A 5
     Route: 065
  11. ASCORBIC ACID [Suspect]
     Active Substance: ASCORBIC ACID
     Indication: Neuroblastoma recurrent
     Dosage: 0.5 TO 1.0 G (WITH AN INJECTION CONTAINING 5 PERCENT GLUCOSE SOLUTION (100-250 ML) IN ANOTHER VEIN C
     Route: 065

REACTIONS (4)
  - Neuroblastoma recurrent [Unknown]
  - Malignant neoplasm progression [Unknown]
  - Product use in unapproved indication [Unknown]
  - Product use issue [Unknown]
